FAERS Safety Report 14882648 (Version 2)
Quarter: 2018Q2

REPORT INFORMATION
  Report Type: Spontaneous
  Country: GB (occurrence: GB)
  Receive Date: 20180511
  Receipt Date: 20180604
  Transmission Date: 20180711
  Serious: Yes (Life-Threatening, Hospitalization, Disabling)
  Sender: FDA-Public Use
  Company Number: GB-JNJFOC-20180508446

PATIENT
  Age: 70 Year
  Sex: Female
  Weight: 60 kg

DRUGS (3)
  1. INFLIXIMAB, RECOMBINANT [Suspect]
     Active Substance: INFLIXIMAB
     Indication: CROHN^S DISEASE
     Route: 042
     Dates: start: 2017
  2. OMEPRAZOLE. [Concomitant]
     Active Substance: OMEPRAZOLE
     Route: 065
  3. AZATHIOPRINE. [Concomitant]
     Active Substance: AZATHIOPRINE
     Route: 065

REACTIONS (5)
  - Dyspnoea [Unknown]
  - Ventricular hypokinesia [Not Recovered/Not Resolved]
  - Hypotension [Unknown]
  - Acute myocardial infarction [Recovered/Resolved with Sequelae]
  - Ventricular tachycardia [Recovered/Resolved]

NARRATIVE: CASE EVENT DATE: 20180412
